FAERS Safety Report 6278666-3 (Version None)
Quarter: 2009Q3

REPORT INFORMATION
  Report Type: 
  Country: None (occurrence: None)
  Receive Date: 20090722
  Receipt Date: 20090713
  Transmission Date: 20100115
  Serious: Yes (Hospitalization)
  Sender: FDA-Public Use
  Company Number: JP-ABBOTT-09P-087-0585320-00

PATIENT
  Age: 44 Year
  Sex: Male

DRUGS (3)
  1. CLARITHROMYCIN [Suspect]
     Indication: HELICOBACTER INFECTION
     Route: 048
     Dates: end: 20090630
  2. OMEPRAL [Suspect]
     Indication: HELICOBACTER INFECTION
     Dates: end: 20090630
  3. AMOXICILLIN HYDRATE [Suspect]
     Indication: HELICOBACTER INFECTION
     Dates: end: 20090630

REACTIONS (2)
  - PYREXIA [None]
  - RASH [None]
